FAERS Safety Report 23629925 (Version 4)
Quarter: 2024Q4

REPORT INFORMATION
  Report Type: Spontaneous
  Country: CA (occurrence: CA)
  Receive Date: 20240314
  Receipt Date: 20241206
  Transmission Date: 20250115
  Serious: Yes (Death, Life-Threatening, Hospitalization, Disabling, Other)
  Sender: Haleon PLC
  Company Number: CA-AMGEN-CANSP2024040704

PATIENT
  Age: 43 Year
  Sex: Female
  Weight: 96 kg

DRUGS (44)
  1. DICLOFENAC [Suspect]
     Active Substance: DICLOFENAC
     Indication: Product used for unknown indication
     Route: 047
  2. DICLOFENAC [Suspect]
     Active Substance: DICLOFENAC
     Route: 065
  3. DICLOFENAC [Suspect]
     Active Substance: DICLOFENAC
     Route: 065
  4. DICLOFENAC [Suspect]
     Active Substance: DICLOFENAC
     Route: 065
  5. VOLTAROL [Suspect]
     Active Substance: DICLOFENAC SODIUM
     Indication: Rheumatoid arthritis
     Route: 065
  6. VOLTAROL [Suspect]
     Active Substance: DICLOFENAC SODIUM
     Route: 048
  7. VOLTAROL [Suspect]
     Active Substance: DICLOFENAC SODIUM
     Route: 065
  8. CALTRATE [Suspect]
     Active Substance: CALCIUM CARBONATE
     Indication: Product used for unknown indication
     Route: 065
  9. CALTRATE [Suspect]
     Active Substance: CALCIUM CARBONATE
     Route: 016
  10. CALTRATE [Suspect]
     Active Substance: CALCIUM CARBONATE
     Route: 065
  11. CONTAC [Suspect]
     Active Substance: ACETAMINOPHEN\PHENYLEPHRINE HYDROCHLORIDE
     Indication: Rheumatoid arthritis
     Route: 065
  12. CONTAC [Suspect]
     Active Substance: ACETAMINOPHEN\PHENYLEPHRINE HYDROCHLORIDE
     Indication: Off label use
     Route: 005
  13. CONTAC [Suspect]
     Active Substance: ACETAMINOPHEN\PHENYLEPHRINE HYDROCHLORIDE
     Indication: Product used for unknown indication
     Route: 048
  14. CONTAC [Suspect]
     Active Substance: ACETAMINOPHEN\PHENYLEPHRINE HYDROCHLORIDE
     Route: 016
  15. CONTAC [Suspect]
     Active Substance: ACETAMINOPHEN\PHENYLEPHRINE HYDROCHLORIDE
     Route: 065
  16. CONTAC [Suspect]
     Active Substance: ACETAMINOPHEN\PHENYLEPHRINE HYDROCHLORIDE
     Route: 005
  17. CONTAC [Suspect]
     Active Substance: ACETAMINOPHEN\PHENYLEPHRINE HYDROCHLORIDE
     Route: 048
  18. CONTAC [Suspect]
     Active Substance: ACETAMINOPHEN\PHENYLEPHRINE HYDROCHLORIDE
     Route: 016
  19. CONTAC [Suspect]
     Active Substance: ACETAMINOPHEN\PHENYLEPHRINE HYDROCHLORIDE
     Route: 048
  20. CONTAC [Suspect]
     Active Substance: ACETAMINOPHEN\PHENYLEPHRINE HYDROCHLORIDE
     Route: 065
  21. CONTAC [Suspect]
     Active Substance: ACETAMINOPHEN\PHENYLEPHRINE HYDROCHLORIDE
     Route: 048
  22. CONTAC [Suspect]
     Active Substance: ACETAMINOPHEN\PHENYLEPHRINE HYDROCHLORIDE
     Route: 065
  23. CONTAC [Suspect]
     Active Substance: ACETAMINOPHEN\PHENYLEPHRINE HYDROCHLORIDE
     Route: 065
  24. CONTAC [Suspect]
     Active Substance: ACETAMINOPHEN\PHENYLEPHRINE HYDROCHLORIDE
     Route: 065
  25. CONTAC [Suspect]
     Active Substance: ACETAMINOPHEN\PHENYLEPHRINE HYDROCHLORIDE
     Route: 065
  26. CONTAC [Suspect]
     Active Substance: ACETAMINOPHEN\PHENYLEPHRINE HYDROCHLORIDE
     Route: 065
  27. CONTAC [Suspect]
     Active Substance: ACETAMINOPHEN\PHENYLEPHRINE HYDROCHLORIDE
     Route: 065
  28. DICLOFENAC SODIUM [Suspect]
     Active Substance: DICLOFENAC SODIUM
     Indication: Product used for unknown indication
     Route: 065
  29. DICLOFENAC SODIUM [Suspect]
     Active Substance: DICLOFENAC SODIUM
     Route: 065
  30. DICLOFENAC SODIUM [Suspect]
     Active Substance: DICLOFENAC SODIUM
     Route: 047
  31. DICLOFENAC SODIUM [Suspect]
     Active Substance: DICLOFENAC SODIUM
     Route: 047
  32. DICLOFENAC SODIUM [Suspect]
     Active Substance: DICLOFENAC SODIUM
     Route: 058
  33. DICLOFENAC SODIUM [Suspect]
     Active Substance: DICLOFENAC SODIUM
     Route: 065
  34. CALTRATE [Suspect]
     Active Substance: CALCIUM CARBONATE
     Indication: Product used for unknown indication
     Route: 065
  35. CALTRATE [Suspect]
     Active Substance: CALCIUM CARBONATE
     Route: 065
  36. PANADOL [Suspect]
     Active Substance: ACETAMINOPHEN
     Indication: Rheumatoid arthritis
     Dosage: UNK
     Route: 065
  37. PANADOL [Suspect]
     Active Substance: ACETAMINOPHEN
     Dosage: UNK
     Route: 058
  38. ASCORBIC ACID [Suspect]
     Active Substance: ASCORBIC ACID
     Indication: Psoriatic arthropathy
     Dosage: 5 MG, BID
  39. ASCORBIC ACID [Suspect]
     Active Substance: ASCORBIC ACID
     Route: 065
  40. FLUTICASONE PROPIONATE [Suspect]
     Active Substance: FLUTICASONE PROPIONATE
     Indication: Product used for unknown indication
     Dosage: UNK
     Route: 065
  41. VOLTAREN [Suspect]
     Active Substance: DICLOFENAC SODIUM
     Indication: Product used for unknown indication
     Dosage: UNK
     Route: 065
  42. ACETAMINOPHEN\CODEINE PHOSPHATE [Suspect]
     Active Substance: ACETAMINOPHEN\CODEINE PHOSPHATE
     Indication: Rheumatoid arthritis
     Dosage: UNK
     Route: 065
  43. ACETAMINOPHEN\CODEINE PHOSPHATE [Suspect]
     Active Substance: ACETAMINOPHEN\CODEINE PHOSPHATE
     Indication: Rheumatoid arthritis
  44. PREPARATION H NOS [Suspect]
     Active Substance: UNSPECIFIED INGREDIENT
     Indication: Rheumatoid arthritis
     Route: 065

REACTIONS (152)
  - Liver disorder [Fatal]
  - Discomfort [Fatal]
  - Drug hypersensitivity [Fatal]
  - Infection [Fatal]
  - Helicobacter infection [Fatal]
  - Disability [Not Recovered/Not Resolved]
  - Lung disorder [Fatal]
  - Headache [Fatal]
  - C-reactive protein increased [Fatal]
  - Insomnia [Not Recovered/Not Resolved]
  - Folliculitis [Fatal]
  - Breast cancer stage II [Not Recovered/Not Resolved]
  - Mobility decreased [Fatal]
  - Anxiety [Fatal]
  - Vomiting [Fatal]
  - Oedema [Fatal]
  - Diarrhoea [Fatal]
  - Decreased appetite [Fatal]
  - Epilepsy [Fatal]
  - Dislocation of vertebra [Not Recovered/Not Resolved]
  - Hepatic enzyme increased [Fatal]
  - Adjustment disorder with depressed mood [Not Recovered/Not Resolved]
  - Abdominal discomfort [Fatal]
  - Malaise [Fatal]
  - Blood cholesterol increased [Fatal]
  - Fatigue [Fatal]
  - Weight increased [Fatal]
  - Ear pain [Not Recovered/Not Resolved]
  - Wound infection [Fatal]
  - Grip strength decreased [Not Recovered/Not Resolved]
  - Hypertension [Fatal]
  - Gastrointestinal disorder [Fatal]
  - Rheumatic fever [Fatal]
  - Migraine [Not Recovered/Not Resolved]
  - Depression [Fatal]
  - Hypersensitivity [Fatal]
  - Muscle injury [Fatal]
  - Delirium [Not Recovered/Not Resolved]
  - Fibromyalgia [Fatal]
  - Condition aggravated [Not Recovered/Not Resolved]
  - Neck pain [Fatal]
  - Respiratory disorder [Not Recovered/Not Resolved]
  - Bursitis [Fatal]
  - Amnesia [Fatal]
  - Therapeutic product effect incomplete [Fatal]
  - Dyspnoea [Fatal]
  - Arthropathy [Fatal]
  - Exposure during pregnancy [Not Recovered/Not Resolved]
  - Muscular weakness [Fatal]
  - Lower respiratory tract infection [Fatal]
  - Confusional state [Fatal]
  - Pneumonia [Fatal]
  - Systemic lupus erythematosus [Fatal]
  - Drug ineffective [Fatal]
  - Psoriatic arthropathy [Fatal]
  - Pericarditis [Fatal]
  - Hand deformity [Fatal]
  - Blister [Fatal]
  - Paraesthesia [Fatal]
  - Anti-cyclic citrullinated peptide antibody positive [Fatal]
  - Therapeutic product effect decreased [Fatal]
  - Irritable bowel syndrome [Fatal]
  - Infusion site reaction [Fatal]
  - Intentional product use issue [Fatal]
  - Urticaria [Fatal]
  - Taste disorder [Fatal]
  - Musculoskeletal pain [Fatal]
  - Arthralgia [Fatal]
  - Synovitis [Fatal]
  - Drug intolerance [Fatal]
  - Live birth [Fatal]
  - Lip dry [Fatal]
  - Muscle spasms [Fatal]
  - Pemphigus [Fatal]
  - Nasopharyngitis [Fatal]
  - Swelling [Fatal]
  - Peripheral venous disease [Fatal]
  - Treatment failure [Fatal]
  - Joint range of motion decreased [Fatal]
  - Pain in extremity [Fatal]
  - Obesity [Fatal]
  - Nail disorder [Fatal]
  - Inflammation [Fatal]
  - Alopecia [Fatal]
  - Asthenia [Fatal]
  - Liver function test increased [Fatal]
  - Contraindicated product administered [Fatal]
  - Facet joint syndrome [Fatal]
  - Abdominal pain upper [Fatal]
  - Gastrooesophageal reflux disease [Fatal]
  - Pain [Fatal]
  - Product use issue [Fatal]
  - Night sweats [Fatal]
  - Glossodynia [Fatal]
  - Hypercholesterolaemia [Fatal]
  - General physical health deterioration [Fatal]
  - Product use in unapproved indication [Fatal]
  - Nausea [Fatal]
  - Hypoaesthesia [Fatal]
  - Onychomadesis [Fatal]
  - Impaired healing [Fatal]
  - Peripheral swelling [Fatal]
  - Wound [Fatal]
  - Gait inability [Fatal]
  - Osteoarthritis [Fatal]
  - Rheumatoid arthritis [Fatal]
  - Dry mouth [Fatal]
  - Breast cancer stage III [Fatal]
  - Memory impairment [Fatal]
  - Blepharospasm [Fatal]
  - Stomatitis [Fatal]
  - Sleep disorder [Fatal]
  - Maternal exposure during pregnancy [Fatal]
  - Duodenal ulcer perforation [Fatal]
  - Infusion related reaction [Fatal]
  - Liver injury [Fatal]
  - Product quality issue [Fatal]
  - Type 2 diabetes mellitus [Fatal]
  - Injury [Fatal]
  - Rash [Fatal]
  - Dizziness [Fatal]
  - Rheumatoid factor positive [Fatal]
  - Pruritus [Fatal]
  - Lower limb fracture [Fatal]
  - Sleep disorder due to general medical condition, insomnia type [Fatal]
  - Normal newborn [Fatal]
  - Swollen joint count increased [Fatal]
  - Pregnancy [Fatal]
  - Pyrexia [Fatal]
  - Wheezing [Fatal]
  - Road traffic accident [Fatal]
  - Walking aid user [Not Recovered/Not Resolved]
  - Weight decreased [Not Recovered/Not Resolved]
  - X-ray abnormal [Not Recovered/Not Resolved]
  - Off label use [Fatal]
  - Prescribed overdose [Fatal]
  - Sinusitis [Fatal]
  - Therapy non-responder [Fatal]
  - C-reactive protein abnormal [Fatal]
  - Musculoskeletal stiffness [Fatal]
  - Sciatica [Fatal]
  - Joint swelling [Fatal]
  - Gait disturbance [Not Recovered/Not Resolved]
  - Autoimmune disorder [Fatal]
  - Asthma [Fatal]
  - C-reactive protein [Fatal]
  - Chest pain [Fatal]
  - Contusion [Fatal]
  - Deep vein thrombosis postoperative [Fatal]
  - Ill-defined disorder [Fatal]
  - Knee arthroplasty [Fatal]
  - Back injury [Fatal]
